FAERS Safety Report 5618272-4 (Version None)
Quarter: 2008Q1

REPORT INFORMATION
  Report Type: 
  Country: None (occurrence: None)
  Receive Date: 20080206
  Receipt Date: 20080206
  Transmission Date: 20080703
  Serious: No
  Sender: FDA-Public Use
  Company Number: None

PATIENT
  Age: 61 Year
  Sex: Male
  Weight: 102.0593 kg

DRUGS (1)
  1. RHINOCORT [Suspect]
     Indication: RHINITIS SEASONAL
     Dosage: 1 SPRAY EACH NOSTRIL 2 TIMES PER DAY TOP
     Route: 061
     Dates: start: 19970101, end: 20070701

REACTIONS (3)
  - CONTUSION [None]
  - RASH [None]
  - SINUSITIS [None]
